FAERS Safety Report 11208964 (Version 1)
Quarter: 2015Q2

REPORT INFORMATION
  Report Type: Spontaneous
  Country: DE (occurrence: DE)
  Receive Date: 20150622
  Receipt Date: 20150622
  Transmission Date: 20150821
  Serious: Yes (Hospitalization)
  Sender: FDA-Public Use
  Company Number: DE-ENDO PHARMACEUTICALS INC.-2015-001448

PATIENT
  Age: 59 Year
  Sex: Female

DRUGS (2)
  1. NAPROXEN TABLETS [Concomitant]
     Active Substance: NAPROXEN
     Indication: MIGRAINE WITH AURA
     Route: 065
  2. FROVA [Suspect]
     Active Substance: FROVATRIPTAN SUCCINATE
     Indication: MIGRAINE WITH AURA
     Dosage: UP TO A MAXIMUM DOSE OF THREE TABLETS (7.5 MG)(1 EVERY 24 HOURS)
     Route: 048
     Dates: start: 1995

REACTIONS (3)
  - Myocarditis [Unknown]
  - Overdose [Unknown]
  - Angina pectoris [Unknown]

NARRATIVE: CASE EVENT DATE: 2014
